FAERS Safety Report 4834751-1 (Version None)
Quarter: 2005Q4

REPORT INFORMATION
  Report Type: 
  Country: None (occurrence: None)
  Receive Date: 20051122
  Receipt Date: 20050823
  Transmission Date: 20060501
  Serious: No
  Sender: FDA-Public Use
  Company Number: US-BRISTOL-MYERS SQUIBB COMPANY-13087358

PATIENT
  Age: 36 Year
  Sex: Male

DRUGS (2)
  1. PRAVACHOL [Suspect]
  2. ZOLOFT [Concomitant]

REACTIONS (1)
  - PHOTOSENSITIVITY REACTION [None]
